FAERS Safety Report 9062100 (Version 1)
Quarter: 2013Q1

REPORT INFORMATION
  Report Type: Spontaneous
  Country: US (occurrence: US)
  Receive Date: 20130127
  Receipt Date: 20130127
  Transmission Date: 20140127
  Serious: No
  Sender: FDA-Public Use
  Company Number: US-ALLERGAN-1202436US

PATIENT
  Age: 72 Year
  Sex: Female

DRUGS (4)
  1. PRED FORTE [Suspect]
     Indication: CATARACT OPERATION
     Dosage: 1 GTT, Q2HR
     Route: 047
  2. BROMFENAC [Concomitant]
     Indication: CATARACT OPERATION
     Dosage: 1 GTT, QD
     Route: 047
  3. VIGAMOX [Concomitant]
     Indication: CATARACT OPERATION
     Dosage: 1 GTT, UNK
     Route: 047
     Dates: start: 20120102, end: 20120115
  4. AZASITE [Concomitant]
     Indication: CATARACT OPERATION
     Dosage: 1 GTT, QD
     Route: 047
     Dates: start: 20120102, end: 20120108

REACTIONS (1)
  - Headache [Not Recovered/Not Resolved]
